FAERS Safety Report 6791101-1 (Version None)
Quarter: 2010Q2

REPORT INFORMATION
  Report Type: 
  Country: None (occurrence: None)
  Receive Date: 20100624
  Receipt Date: 20100615
  Transmission Date: 20101027
  Serious: Yes (Hospitalization)
  Sender: FDA-Public Use
  Company Number: GXKR2010KR06595

PATIENT
  Age: 39 Year
  Sex: Female
  Weight: 76.7 kg

DRUGS (7)
  1. AMINOPHYLLINE (NGX) [Suspect]
     Indication: MESOTHERAPY
     Dosage: ONCE DAILY
     Route: 058
  2. FLUOXETINE [Suspect]
     Indication: OBESITY
     Dosage: 10 MG, BID
     Route: 048
  3. EPHEDRINE (NGX) [Suspect]
     Indication: OBESITY
     Dosage: 10 MG, BID
     Route: 048
  4. EPINEPHRINE [Suspect]
     Indication: MESOTHERAPY
     Dosage: ONCE DAILY
     Route: 058
  5. CAFFEINE [Suspect]
     Indication: OBESITY
     Dosage: 50 MG, BID
     Route: 048
  6. CAMELLIA SINENSIS [Suspect]
     Indication: OBESITY
     Dosage: 250 MG, BID
     Route: 048
  7. LIDOCAINE [Concomitant]
     Indication: MESOTHERAPY
     Dosage: ONCE DAILY
     Route: 058

REACTIONS (8)
  - ABDOMINAL DISCOMFORT [None]
  - ABDOMINAL PAIN LOWER [None]
  - ABDOMINAL TENDERNESS [None]
  - COLITIS ISCHAEMIC [None]
  - HAEMATOCHEZIA [None]
  - LEUKOCYTOSIS [None]
  - NAUSEA [None]
  - VOMITING [None]
